FAERS Safety Report 7937464-2 (Version None)
Quarter: 2011Q4

REPORT INFORMATION
  Report Type: 
  Country: None (occurrence: None)
  Receive Date: 20111123
  Receipt Date: 20111115
  Transmission Date: 20120403
  Serious: Yes (Other)
  Sender: FDA-Public Use
  Company Number: PHHY2011GB100770

PATIENT
  Age: 22 Year
  Sex: Female

DRUGS (1)
  1. AMLODIPINE [Suspect]
     Dosage: 280 MG, UNK

REACTIONS (15)
  - PULMONARY OEDEMA [None]
  - PLEURAL EFFUSION [None]
  - GALLOP RHYTHM PRESENT [None]
  - HYPOCALCAEMIA [None]
  - CARDIAC FAILURE CONGESTIVE [None]
  - VENOUS PRESSURE JUGULAR INCREASED [None]
  - OVERDOSE [None]
  - HEART RATE DECREASED [None]
  - CARDIAC MURMUR [None]
  - HYPOTENSION [None]
  - ELECTROCARDIOGRAM T WAVE INVERSION [None]
  - DYSPNOEA [None]
  - TROPONIN INCREASED [None]
  - RALES [None]
  - HYPOXIA [None]
